FAERS Safety Report 10415601 (Version 1)
Quarter: 2014Q3

REPORT INFORMATION
  Report Type: Spontaneous
  Country: IN (occurrence: None)
  Receive Date: 20140826
  Receipt Date: 20140826
  Transmission Date: 20150326
  Serious: Yes (Other)
  Sender: FDA-Public Use
  Company Number: IN-ALKEM-000684

PATIENT
  Age: 36 Year
  Sex: Female

DRUGS (3)
  1. PREDNISOLONE (PREDNISOLONE) [Suspect]
     Active Substance: PREDNISOLONE
     Indication: RENAL TRANSPLANT
  2. MYCOPHENOLATE MOFETIL (MCOPHENOLATE MOFETIL) [Suspect]
     Active Substance: MYCOPHENOLATE MOFETIL
     Indication: RENAL TRANSPLANT
  3. CYCLOSPORINE. [Suspect]
     Active Substance: CYCLOSPORINE
     Indication: RENAL TRANSPLANT

REACTIONS (1)
  - Alveolar proteinosis [None]
